FAERS Safety Report 9167137 (Version 3)
Quarter: 2013Q2

REPORT INFORMATION
  Report Type: Spontaneous
  Country: US (occurrence: US)
  Receive Date: 20130318
  Receipt Date: 20130607
  Transmission Date: 20140414
  Serious: Yes (Hospitalization)
  Sender: FDA-Public Use
  Company Number: US-BIOGENIDEC-2013BI023327

PATIENT
  Age: 68 Year
  Sex: Female

DRUGS (3)
  1. AVONEX [Suspect]
     Indication: MULTIPLE SCLEROSIS
     Route: 030
  2. AVONEX [Suspect]
     Indication: MULTIPLE SCLEROSIS
     Route: 030
     Dates: start: 19980504, end: 20080204
  3. AVONEX [Suspect]
     Indication: MULTIPLE SCLEROSIS
     Route: 030
     Dates: start: 20090708, end: 20130104

REACTIONS (5)
  - Delusion [Unknown]
  - Confusional state [Unknown]
  - Psychotic disorder [Recovered/Resolved]
  - Diarrhoea [Unknown]
  - Chills [Recovered/Resolved]
